FAERS Safety Report 15262181 (Version 1)
Quarter: 2018Q3

REPORT INFORMATION
  Report Type: Report from Study
  Country: DE (occurrence: DE)
  Receive Date: 20180809
  Receipt Date: 20180809
  Transmission Date: 20181010
  Serious: Yes (Hospitalization, Other)
  Sender: FDA-Public Use
  Company Number: DE-TEVA-2018-DE-937010

PATIENT
  Age: 52 Year
  Sex: Female

DRUGS (3)
  1. MTX [Suspect]
     Active Substance: METHOTREXATE SODIUM
     Indication: PRODUCT USED FOR UNKNOWN INDICATION
     Route: 065
     Dates: end: 2017
  2. HUMIRA [Suspect]
     Active Substance: ADALIMUMAB
     Indication: RHEUMATOID ARTHRITIS
     Route: 058
     Dates: start: 201703
  3. MTX [Suspect]
     Active Substance: METHOTREXATE SODIUM
     Route: 065
     Dates: start: 2017

REACTIONS (5)
  - Tooth repair [Recovered/Resolved]
  - Aphthous ulcer [Unknown]
  - Thyroid neoplasm [Unknown]
  - Nasopharyngitis [Unknown]
  - Osteoporosis [Recovered/Resolved]

NARRATIVE: CASE EVENT DATE: 20170531
